FAERS Safety Report 18828642 (Version 1)
Quarter: 2021Q1

REPORT INFORMATION
  Report Type: Spontaneous
  Country: US (occurrence: US)
  Receive Date: 20210201
  Receipt Date: 20210201
  Transmission Date: 20210419
  Serious: No
  Sender: FDA-Public Use
  Company Number: US-ABBVIE-20K-163-3536785-00

PATIENT
  Age: 60 Year
  Sex: Male
  Weight: 69.92 kg

DRUGS (3)
  1. HUMIRA [Suspect]
     Active Substance: ADALIMUMAB
     Route: 058
  2. HUMIRA [Suspect]
     Active Substance: ADALIMUMAB
     Route: 058
     Dates: start: 202005
  3. HUMIRA [Suspect]
     Active Substance: ADALIMUMAB
     Indication: PSORIASIS
     Route: 058
     Dates: start: 2009, end: 20190703

REACTIONS (4)
  - Gastrointestinal disorder [Not Recovered/Not Resolved]
  - Drug ineffective [Not Recovered/Not Resolved]
  - Device issue [Recovered/Resolved]
  - Constipation [Not Recovered/Not Resolved]

NARRATIVE: CASE EVENT DATE: 202005
